FAERS Safety Report 19360970 (Version 1)
Quarter: 2021Q2

REPORT INFORMATION
  Report Type: Report from Study
  Country: None (occurrence: US)
  Receive Date: 20210602
  Receipt Date: 20210602
  Transmission Date: 20210717
  Serious: No
  Sender: FDA-Public Use
  Company Number: US-MDD US OPERATIONS-MDD202104-000725

PATIENT
  Age: 66 Year
  Sex: Male
  Weight: 65.7 kg

DRUGS (15)
  1. APOKYN [Suspect]
     Active Substance: APOMORPHINE HYDROCHLORIDE
     Indication: PARKINSON^S DISEASE
     Dosage: UPTO 0.4 ML
     Route: 058
  2. BACLOFEN. [Concomitant]
     Active Substance: BACLOFEN
     Dosage: NOT PROVIDED
  3. XANAX [Concomitant]
     Active Substance: ALPRAZOLAM
     Dosage: NOT PROVIDED
  4. REMERON [Concomitant]
     Active Substance: MIRTAZAPINE
     Dosage: NOT PROVIDED
  5. HALCION [Concomitant]
     Active Substance: TRIAZOLAM
     Dosage: NOT PROVIDED
  6. VALIUM [Concomitant]
     Active Substance: DIAZEPAM
     Dosage: NOT PROVIDED
  7. PRILOSEC OTC [Concomitant]
     Active Substance: OMEPRAZOLE MAGNESIUM
     Dosage: NOT PROVIDED
  8. XADAGO [Concomitant]
     Active Substance: SAFINAMIDE MESYLATE
     Dosage: NOT PROVIDED
  9. SINEMET 25?100 [Concomitant]
     Dosage: EACH DF OF 25?100 MG
  10. LINZESS [Concomitant]
     Active Substance: LINACLOTIDE
     Dosage: NOT PROVIDED
  11. SINEMET CR [Concomitant]
     Active Substance: CARBIDOPA\LEVODOPA
     Dosage: EACH DF OF 25?100 MG
  12. TRIMETHOBENZAMIDE HYDROCHLORIDE. [Concomitant]
     Active Substance: TRIMETHOBENZAMIDE HYDROCHLORIDE
     Dosage: NOT PROVIDED
  13. PROVENTIL HFA [Concomitant]
     Active Substance: ALBUTEROL SULFATE
     Dosage: NOT PROVIDED
  14. AMANTADINE. [Concomitant]
     Active Substance: AMANTADINE HYDROCHLORIDE
     Dosage: NOT PROVIDED
  15. VENTOLIN HFA [Concomitant]
     Active Substance: ALBUTEROL SULFATE
     Dosage: NOT PROVIDED

REACTIONS (1)
  - Administration site injury [Unknown]
